FAERS Safety Report 24267421 (Version 1)
Quarter: 2024Q3

REPORT INFORMATION
  Report Type: Spontaneous
  Country: US (occurrence: None)
  Receive Date: 20240828
  Receipt Date: 20240828
  Transmission Date: 20241017
  Serious: Yes (Life-Threatening, Other)
  Sender: Public
  Company Number: None

PATIENT
  Age: 80 Year
  Sex: Male
  Weight: 69 kg

DRUGS (1)
  1. OZEMPIC [Suspect]
     Active Substance: SEMAGLUTIDE
     Dosage: FREQUENCY : WEEKLY;?
     Route: 058
     Dates: start: 20240201, end: 20240804

REACTIONS (8)
  - Hypophagia [None]
  - Abdominal pain [None]
  - Nausea [None]
  - Constipation [None]
  - Brain fog [None]
  - Weight decreased [None]
  - Pancreatic carcinoma metastatic [None]
  - Metastases to liver [None]

NARRATIVE: CASE EVENT DATE: 20240804
